FAERS Safety Report 8610424-4 (Version None)
Quarter: 2012Q3

REPORT INFORMATION
  Report Type: 
  Country: None (occurrence: None)
  Receive Date: 20120822
  Receipt Date: 20120820
  Transmission Date: 20120928
  Serious: No
  Sender: FDA-Public Use
  Company Number: US-PFIZER INC-2012195962

PATIENT
  Sex: Male

DRUGS (3)
  1. PLAVIX [Concomitant]
     Indication: STENT PLACEMENT
     Dosage: UNK
     Dates: start: 20070101
  2. LIPITOR [Suspect]
     Indication: BLOOD CHOLESTEROL ABNORMAL
     Dosage: 5 MG, UNK
     Route: 048
     Dates: start: 20070101, end: 20120701
  3. PLAVIX [Concomitant]
     Indication: CHEST PAIN

REACTIONS (4)
  - CHEST PAIN [None]
  - DIZZINESS [None]
  - ASTHENIA [None]
  - HEADACHE [None]
